FAERS Safety Report 16529304 (Version 1)
Quarter: 2019Q3

REPORT INFORMATION
  Report Type: Spontaneous
  Country: US (occurrence: US)
  Receive Date: 20190704
  Receipt Date: 20190704
  Transmission Date: 20191004
  Serious: No
  Sender: FDA-Public Use
  Company Number: US-GW PHARMA-201906USGW2024

PATIENT

DRUGS (2)
  1. EPIDIOLEX [Suspect]
     Active Substance: CANNABIDIOL
     Indication: LENNOX-GASTAUT SYNDROME
     Dosage: UNK
     Route: 048
     Dates: start: 20190106, end: 201906
  2. EPIDIOLEX [Suspect]
     Active Substance: CANNABIDIOL
     Dosage: 700 MILLIGRAM, BID
     Route: 048
     Dates: start: 201906

REACTIONS (1)
  - Seizure cluster [Unknown]

NARRATIVE: CASE EVENT DATE: 20190616
